FAERS Safety Report 16043971 (Version 4)
Quarter: 2019Q2

REPORT INFORMATION
  Report Type: Spontaneous
  Country: US (occurrence: US)
  Receive Date: 20190306
  Receipt Date: 20190529
  Transmission Date: 20190711
  Serious: No
  Sender: FDA-Public Use
  Company Number: US-SA-2019SA058277

PATIENT
  Age: 60 Year
  Sex: Female

DRUGS (1)
  1. ADMELOG [Suspect]
     Active Substance: INSULIN LISPRO
     Indication: TYPE 2 DIABETES MELLITUS
     Dosage: 30 U WITH MEALS
     Route: 065

REACTIONS (4)
  - Confusional state [Unknown]
  - Blood glucose decreased [Unknown]
  - Device operational issue [Unknown]
  - Hyperhidrosis [Unknown]
